FAERS Safety Report 8492835-3 (Version None)
Quarter: 2012Q3

REPORT INFORMATION
  Report Type: 
  Country: None (occurrence: None)
  Receive Date: 20120706
  Receipt Date: 20120625
  Transmission Date: 20120928
  Serious: Yes (Other)
  Sender: FDA-Public Use
  Company Number: US-ELI_LILLY_AND_COMPANY-US201206008265

PATIENT
  Sex: Female

DRUGS (2)
  1. CELEBREX [Concomitant]
     Dosage: UNK
  2. FORTEO [Suspect]
     Indication: OSTEOPOROSIS
     Dosage: 20 UG, QD
     Dates: start: 20120101, end: 20120604

REACTIONS (4)
  - FEELING ABNORMAL [None]
  - PAIN [None]
  - VISUAL IMPAIRMENT [None]
  - KNEE ARTHROPLASTY [None]
